FAERS Safety Report 6951082-4 (Version None)
Quarter: 2010Q3

REPORT INFORMATION
  Report Type: 
  Country: None (occurrence: None)
  Receive Date: 20100828
  Receipt Date: 20100305
  Transmission Date: 20110219
  Serious: No
  Sender: FDA-Public Use
  Company Number: US-ABBOTT-10P-163-0631886-00

PATIENT
  Age: 50 Year
  Sex: Female

DRUGS (1)
  1. NIASPAN [Suspect]
     Indication: BLOOD TRIGLYCERIDES INCREASED
     Dosage: DAILY
     Route: 048

REACTIONS (1)
  - BLOOD CREATINE PHOSPHOKINASE INCREASED [None]
